FAERS Safety Report 18648842 (Version 1)
Quarter: 2020Q4

REPORT INFORMATION
  Report Type: Spontaneous
  Country: US (occurrence: US)
  Receive Date: 20201222
  Receipt Date: 20201222
  Transmission Date: 20210114
  Serious: Yes (Other)
  Sender: FDA-Public Use
  Company Number: US-PFIZER INC-2020500797

PATIENT
  Age: 39 Year
  Sex: Male
  Weight: 95.71 kg

DRUGS (2)
  1. SERTRALINE HCL [Suspect]
     Active Substance: SERTRALINE HYDROCHLORIDE
     Dosage: 200 MG, 1X/DAY (100 MG TABLETS AND HE TAKES 2 OF THEM DAILY)
     Route: 048
  2. SERTRALINE HCL [Suspect]
     Active Substance: SERTRALINE HYDROCHLORIDE
     Indication: DEPRESSION
     Dosage: 150 MG

REACTIONS (9)
  - Stress [Unknown]
  - Muscle injury [Unknown]
  - Pain [Unknown]
  - Malaise [Unknown]
  - Blood creatine phosphokinase increased [Unknown]
  - Irritability [Unknown]
  - Dyskinesia [Unknown]
  - Muscle spasms [Unknown]
  - Pain in extremity [Unknown]

NARRATIVE: CASE EVENT DATE: 201812
